FAERS Safety Report 9074744 (Version 1)
Quarter: 2013Q1

REPORT INFORMATION
  Report Type: Spontaneous
  Country: BR (occurrence: BR)
  Receive Date: 20130129
  Receipt Date: 20130129
  Transmission Date: 20140127
  Serious: Yes (Other)
  Sender: FDA-Public Use
  Company Number: BR-GLAXOSMITHKLINE-A1009799A

PATIENT
  Age: 46 Year
  Sex: Female
  Weight: 63 kg

DRUGS (3)
  1. NIQUITIN [Suspect]
     Indication: EX-TOBACCO USER
     Dosage: 21MG PER DAY
     Route: 062
     Dates: start: 20130111, end: 20130118
  2. NIQUITIN [Suspect]
     Indication: EX-TOBACCO USER
     Dosage: 14MG PER DAY
     Route: 062
     Dates: start: 20130118
  3. ATENOLOL [Concomitant]
     Indication: PRODUCT USED FOR UNKNOWN INDICATION
     Dosage: 1TAB PER DAY
     Route: 048
     Dates: start: 201201

REACTIONS (5)
  - Deafness [Recovered/Resolved]
  - Hypotension [Recovered/Resolved]
  - Tremor [Recovered/Resolved]
  - Vision blurred [Recovered/Resolved]
  - Drug administration error [Unknown]
